FAERS Safety Report 5094355-5 (Version None)
Quarter: 2006Q3

REPORT INFORMATION
  Report Type: 
  Country: None (occurrence: None)
  Receive Date: 20060831
  Receipt Date: 20060815
  Transmission Date: 20061208
  Serious: Yes (Other)
  Sender: FDA-Public Use
  Company Number: PE-GILEAD-2006-0010063

PATIENT
  Age: 40 Year
  Sex: Female
  Weight: 65.4 kg

DRUGS (4)
  1. EMTRICITABINE [Suspect]
     Indication: HIV INFECTION
     Route: 048
     Dates: start: 20060310, end: 20060722
  2. ATAZANAVIR [Suspect]
     Indication: HIV INFECTION
     Route: 048
     Dates: start: 20060310, end: 20060722
  3. DIDANOSINE [Suspect]
     Indication: HIV INFECTION
     Route: 048
     Dates: start: 20060310, end: 20060722
  4. MEDROXYPROGESTERONE ACETATE [Concomitant]

REACTIONS (1)
  - HEPATITIS B [None]
